FAERS Safety Report 7329877-7 (Version None)
Quarter: 2011Q1

REPORT INFORMATION
  Report Type: 
  Country: None (occurrence: None)
  Receive Date: 20110303
  Receipt Date: 20110223
  Transmission Date: 20110831
  Serious: Yes (Other)
  Sender: FDA-Public Use
  Company Number: US-GILEAD-2010-0032336

PATIENT
  Sex: Female

DRUGS (2)
  1. ARTHROTEC [Concomitant]
  2. LETAIRIS [Suspect]
     Indication: PULMONARY HYPERTENSION
     Route: 048
     Dates: start: 20100702

REACTIONS (1)
  - GLOMERULAR FILTRATION RATE DECREASED [None]
